FAERS Safety Report 14225156 (Version 1)
Quarter: 2017Q4

REPORT INFORMATION
  Report Type: Spontaneous
  Country: US (occurrence: US)
  Receive Date: 20171127
  Receipt Date: 20171127
  Transmission Date: 20180321
  Serious: No
  Sender: FDA-Public Use
  Company Number: US-AUROBINDO-AUR-APU-2017-31407

PATIENT
  Sex: Male

DRUGS (1)
  1. LOSARTAN TABLETS [Suspect]
     Active Substance: LOSARTAN
     Indication: HYPERTENSION
     Dosage: 25 MG TABLET BY MOUTH IN MORNING AND ONE HALF OF A TABLET IN EVENING
     Route: 048
     Dates: start: 20160801

REACTIONS (1)
  - Drug ineffective [Unknown]
